FAERS Safety Report 15283532 (Version 1)
Quarter: 2018Q3

REPORT INFORMATION
  Report Type: Spontaneous
  Country: DE (occurrence: DE)
  Receive Date: 20180816
  Receipt Date: 20180816
  Transmission Date: 20181010
  Serious: Yes (Life-Threatening, Hospitalization)
  Sender: FDA-Public Use
  Company Number: DE-KRKA, D.D., NOVO MESTO-2053794

PATIENT
  Age: 80 Year
  Sex: Female
  Weight: 91 kg

DRUGS (12)
  1. PREDNISOLONE. [Concomitant]
     Active Substance: PREDNISOLONE
     Route: 048
  2. ACETYLSALICYLIC ACID [Concomitant]
     Active Substance: ASPIRIN
     Route: 048
  3. PARACODIN [Concomitant]
     Active Substance: DIHYDROCODEINE BITARTRATE
     Route: 048
  4. ENALAPRIL MALEATE. [Suspect]
     Active Substance: ENALAPRIL MALEATE
     Indication: HYPERTENSION
     Route: 048
  5. OMEPRAZOLE. [Concomitant]
     Active Substance: OMEPRAZOLE
     Route: 048
  6. TORASEMIDE [Concomitant]
     Active Substance: TORSEMIDE
     Route: 048
  7. LANTUS [Suspect]
     Active Substance: INSULIN GLARGINE
     Route: 058
     Dates: start: 20080219, end: 20080316
  8. RISPERIDONE. [Concomitant]
     Active Substance: RISPERIDONE
     Route: 048
  9. DILATREND [Suspect]
     Active Substance: CARVEDILOL
     Route: 048
  10. ACTRAPID [Suspect]
     Active Substance: INSULIN HUMAN
     Route: 058
     Dates: start: 20080219, end: 20080316
  11. SALBUTAMOL [Concomitant]
     Active Substance: ALBUTEROL
     Route: 055
  12. LEVOTHYROXINE. [Concomitant]
     Active Substance: LEVOTHYROXINE
     Route: 048

REACTIONS (6)
  - C-reactive protein increased [None]
  - Hypoglycaemia [Recovered/Resolved]
  - Haemoglobin decreased [Unknown]
  - Blood creatinine increased [Unknown]
  - Haematocrit decreased [Unknown]
  - Glycosylated haemoglobin increased [Unknown]

NARRATIVE: CASE EVENT DATE: 20080317
